FAERS Safety Report 11632460 (Version 1)
Quarter: 2015Q4

REPORT INFORMATION
  Report Type: Spontaneous
  Country: US (occurrence: None)
  Receive Date: 20151014
  Receipt Date: 20151014
  Transmission Date: 20160304
  Serious: Yes (Hospitalization)
  Sender: FDA-Public Use
  Company Number: None

PATIENT
  Age: 64 Year
  Sex: Male
  Weight: 81.8 kg

DRUGS (2)
  1. ASPIRIN. [Suspect]
     Active Substance: ASPIRIN
     Indication: PAIN
     Dosage: 650 MG, OTHER
     Route: 048
     Dates: start: 20150921, end: 20151007
  2. NAPROXEN. [Suspect]
     Active Substance: NAPROXEN
     Indication: PAIN
     Route: 048
     Dates: start: 20150921, end: 20151007

REACTIONS (3)
  - Gastric ulcer [None]
  - Gastric haemorrhage [None]
  - Gastritis [None]

NARRATIVE: CASE EVENT DATE: 20151012
